FAERS Safety Report 11579919 (Version 1)
Quarter: 2015Q3

REPORT INFORMATION
  Report Type: Spontaneous
  Country: FI (occurrence: FI)
  Receive Date: 20150930
  Receipt Date: 20150930
  Transmission Date: 20151125
  Serious: Yes (Death, Life-Threatening, Other)
  Sender: FDA-Public Use
  Company Number: FI-ASTRAZENECA-2015SE93834

PATIENT
  Sex: Female

DRUGS (3)
  1. SEROQUEL [Suspect]
     Active Substance: QUETIAPINE FUMARATE
     Route: 064
  2. ANAFRANIL [Suspect]
     Active Substance: CLOMIPRAMINE HYDROCHLORIDE
     Dosage: 75, UNKNOWN
     Route: 064
  3. SERONIL [Suspect]
     Active Substance: FLUOXETINE HYDROCHLORIDE
     Dosage: 10-20
     Route: 064

REACTIONS (3)
  - Umbilical cord around neck [Unknown]
  - Growth retardation [Unknown]
  - Foetal death [Fatal]

NARRATIVE: CASE EVENT DATE: 20140128
